FAERS Safety Report 19932208 (Version 1)
Quarter: 2021Q4

REPORT INFORMATION
  Report Type: Report from Study
  Country: US (occurrence: US)
  Receive Date: 20211008
  Receipt Date: 20211008
  Transmission Date: 20220303
  Serious: Yes (Other)
  Sender: FDA-Public Use
  Company Number: US-BRISTOL-MYERS SQUIBB COMPANY-BMS-2021-101229

PATIENT
  Age: 52 Year
  Sex: Female
  Weight: 59.8 kg

DRUGS (2)
  1. IPILIMUMAB [Suspect]
     Active Substance: IPILIMUMAB
     Indication: Glioblastoma
     Dosage: 55 MILLIGRAM
     Route: 065
     Dates: start: 20210524
  2. NIVOLUMAB [Suspect]
     Active Substance: NIVOLUMAB
     Indication: Glioblastoma
     Dosage: 337.2 MILLIGRAM
     Route: 065
     Dates: start: 20210607

REACTIONS (1)
  - Brain oedema [Not Recovered/Not Resolved]

NARRATIVE: CASE EVENT DATE: 20210617
